FAERS Safety Report 7563469-X (Version None)
Quarter: 2011Q2

REPORT INFORMATION
  Report Type: 
  Country: None (occurrence: None)
  Receive Date: 20110622
  Receipt Date: 20110609
  Transmission Date: 20111010
  Serious: Yes (Hospitalization)
  Sender: FDA-Public Use
  Company Number: FR-ELI_LILLY_AND_COMPANY-FR201106002326

PATIENT
  Sex: Male

DRUGS (11)
  1. ZYPREXA [Suspect]
     Dosage: 10 MG QD
     Dates: start: 20110304
  2. ACETAMINOPHEN AND CODEINE PHOSPHATE [Concomitant]
     Route: 048
  3. METRONIDAZOLE [Concomitant]
     Dosage: 250 MG, UNK
     Route: 048
  4. SEMAP [Concomitant]
     Dosage: 20 MG, UNK
     Route: 048
  5. AUGMENTIN '125' [Concomitant]
     Dosage: 1 G, UNK
  6. LASIX [Concomitant]
     Indication: OLIGURIA
     Dosage: 1 G, QD
  7. LOXAPINE HCL [Concomitant]
     Dosage: 50 MG, UNK
     Route: 048
  8. ZYPREXA [Suspect]
     Dosage: 10 MG, QD
     Route: 048
     Dates: start: 20101208, end: 20110224
  9. ALPRAZOLAM [Concomitant]
     Dosage: 0.5 MG, UNK
     Route: 048
  10. ZOLPIDEM [Concomitant]
     Dosage: 10 MG, UNK
     Route: 048
  11. RISPERDAL [Concomitant]
     Dosage: 4 MG, UNK
     Route: 048

REACTIONS (7)
  - COMA [None]
  - MALAISE [None]
  - RHABDOMYOLYSIS [None]
  - CONVULSION [None]
  - BLOOD CREATINE PHOSPHOKINASE INCREASED [None]
  - CRYING [None]
  - FALL [None]
